FAERS Safety Report 4397595-3 (Version None)
Quarter: 2004Q3

REPORT INFORMATION
  Report Type: 
  Country: None (occurrence: None)
  Receive Date: 20040708
  Receipt Date: 20040624
  Transmission Date: 20050211
  Serious: Yes (Death, Hospitalization)
  Sender: FDA-Public Use
  Company Number: STA-AE-04-MTX-257

PATIENT
  Age: 73 Year
  Sex: Male

DRUGS (8)
  1. RHEUMATREX [Suspect]
     Indication: RHEUMATOID ARTHRITIS
     Dosage: 4 MG 1X PER 1 WK, ORAL
     Route: 048
     Dates: start: 20020101, end: 20040522
  2. RHEUMATREX [Suspect]
     Indication: RHEUMATOID ARTHRITIS
     Dosage: 2.5 MG 1X PER 1WK, ORAL
     Route: 048
     Dates: start: 20020101, end: 20040522
  3. PREDNISOLONE [Concomitant]
  4. ALFAROL (ALFACALCIDOL) [Concomitant]
  5. TAGAMET [Concomitant]
  6. LOXONIN (LOXOPROFEN SODIUM) [Concomitant]
  7. ULGUT (BENEXATE HYDROCHLORIDE) [Concomitant]
  8. JUVELA (TOCOPHEROL) [Concomitant]

REACTIONS (1)
  - HEPATITIS B [None]
